FAERS Safety Report 21379697 (Version 1)
Quarter: 2022Q3

REPORT INFORMATION
  Report Type: Spontaneous
  Country: US (occurrence: None)
  Receive Date: 20220923
  Receipt Date: 20220923
  Transmission Date: 20221027
  Serious: No
  Sender: FDA-Public Use
  Company Number: None

PATIENT
  Age: 74 Year
  Sex: Male
  Weight: 94 kg

DRUGS (1)
  1. EMPAGLIFLOZIN [Suspect]
     Active Substance: EMPAGLIFLOZIN
     Indication: Diabetes mellitus
     Dosage: FREQUENCY : DAILY;?
     Route: 048
     Dates: start: 20211220, end: 20220710

REACTIONS (4)
  - Acute myocardial infarction [None]
  - Euglycaemic diabetic ketoacidosis [None]
  - Metabolic acidosis [None]
  - Cardiogenic shock [None]

NARRATIVE: CASE EVENT DATE: 20220710
